FAERS Safety Report 5083079-6 (Version None)
Quarter: 2006Q3

REPORT INFORMATION
  Report Type: 
  Country: None (occurrence: None)
  Receive Date: 20060814
  Receipt Date: 20060803
  Transmission Date: 20061208
  Serious: Yes (Hospitalization)
  Sender: FDA-Public Use
  Company Number: 2006096259

PATIENT
  Age: 90 Year
  Sex: Male

DRUGS (11)
  1. SPIRONOLACTONE [Suspect]
     Indication: DRUG USE FOR UNKNOWN INDICATION
     Dosage: ORAL
     Route: 048
     Dates: end: 20060101
  2. NORVASC [Suspect]
     Indication: DRUG USE FOR UNKNOWN INDICATION
     Dosage: ORAL
     Route: 048
     Dates: end: 20060101
  3. SPIRIVA [Concomitant]
  4. NITROMEX (GLYCERYL TRINITRATE) [Concomitant]
  5. ZAROXOLYN [Concomitant]
  6. FUROSEMIDE [Concomitant]
  7. ATROVENT [Concomitant]
  8. PULMICORT [Concomitant]
  9. ASPIRIN [Concomitant]
  10. LACTULOSE [Concomitant]
  11. ISOSORBIDE MONONITRATE [Concomitant]

REACTIONS (3)
  - BLOOD CREATINE INCREASED [None]
  - DYSPNOEA [None]
  - PANCYTOPENIA [None]
